FAERS Safety Report 26017788 (Version 1)
Quarter: 2025Q4

REPORT INFORMATION
  Report Type: Spontaneous
  Country: CN (occurrence: CN)
  Receive Date: 20251110
  Receipt Date: 20251110
  Transmission Date: 20260117
  Serious: Yes (Other)
  Sender: Kenvue
  Company Number: CN-KENVUE-20251100177

PATIENT

DRUGS (1)
  1. CHILDRENS MOTRIN [Suspect]
     Active Substance: IBUPROFEN
     Indication: Pyrexia
     Dosage: 2.5 MILLILITER, FOUR TIME A DAY
     Route: 048
     Dates: start: 20251016, end: 20251017

REACTIONS (3)
  - Ocular hyperaemia [Not Recovered/Not Resolved]
  - Off label use [Unknown]
  - Rash maculo-papular [Not Recovered/Not Resolved]

NARRATIVE: CASE EVENT DATE: 20251016
